FAERS Safety Report 18452031 (Version 1)
Quarter: 2020Q4

REPORT INFORMATION
  Report Type: Spontaneous
  Country: US (occurrence: US)
  Receive Date: 20201031
  Receipt Date: 20201031
  Transmission Date: 20210114
  Serious: Yes (Life-Threatening)
  Sender: FDA-Public Use
  Company Number: None

PATIENT
  Age: 20 Year
  Sex: Female
  Weight: 45 kg

DRUGS (2)
  1. LATUDA [Suspect]
     Active Substance: LURASIDONE HYDROCHLORIDE
     Indication: BIPOLAR DISORDER
     Dosage: ?          QUANTITY:1 TABLET(S);?
     Route: 048
     Dates: start: 20201030, end: 20201031
  2. 150 MG PREGABALIN ORAL [Concomitant]

REACTIONS (7)
  - Somnolence [None]
  - Swollen tongue [None]
  - Dyspnoea [None]
  - Hypersensitivity [None]
  - Cyanosis [None]
  - Skin discolouration [None]
  - Confusional state [None]

NARRATIVE: CASE EVENT DATE: 20201030
